FAERS Safety Report 7519846-6 (Version None)
Quarter: 2011Q2

REPORT INFORMATION
  Report Type: 
  Country: None (occurrence: None)
  Receive Date: 20110602
  Receipt Date: 20110524
  Transmission Date: 20111010
  Serious: Yes (Hospitalization)
  Sender: FDA-Public Use
  Company Number: FR-UCBSA-024738

PATIENT
  Sex: Male
  Weight: 82 kg

DRUGS (2)
  1. KEPPRA [Suspect]
     Route: 048
  2. KEPPRA [Suspect]
     Indication: EPILEPSY
     Dosage: THERAPY DATES FROM :2007 OR 2008,
     Route: 048

REACTIONS (2)
  - HAEMATURIA [None]
  - PYREXIA [None]
